FAERS Safety Report 13192486 (Version 1)
Quarter: 2017Q1

REPORT INFORMATION
  Report Type: Spontaneous
  Country: US (occurrence: US)
  Receive Date: 20170207
  Receipt Date: 20170207
  Transmission Date: 20170428
  Serious: Yes (Disabling)
  Sender: FDA-Public Use
  Company Number: None

PATIENT
  Age: 8 Year
  Sex: Female
  Weight: 28.35 kg

DRUGS (6)
  1. OXCARBAZEPINE. [Concomitant]
     Active Substance: OXCARBAZEPINE
  2. SAIZEN WITH EASYPOD [Concomitant]
  3. CLONIDINE. [Concomitant]
     Active Substance: CLONIDINE
  4. RISPERDONE [Concomitant]
     Active Substance: RISPERIDONE
  5. SAIZEN [Suspect]
     Active Substance: SOMATROPIN
     Indication: GROWTH HORMONE DEFICIENCY
     Dosage: 1 INJECTION(S); AT BEDTIME?
     Route: 058
  6. FLINTSTONES GUMMIES [Concomitant]
     Active Substance: VITAMINS

REACTIONS (2)
  - Arnold-Chiari malformation [None]
  - Sleep apnoea syndrome [None]

NARRATIVE: CASE EVENT DATE: 20150901
